FAERS Safety Report 9582387 (Version 1)
Quarter: 2013Q4

REPORT INFORMATION
  Report Type: Spontaneous
  Country: US (occurrence: US)
  Receive Date: 20131002
  Receipt Date: 20131002
  Transmission Date: 20140711
  Serious: No
  Sender: FDA-Public Use
  Company Number: US-AMGEN-USASP2013040275

PATIENT
  Age: 62 Year
  Sex: Female
  Weight: 90.7 kg

DRUGS (11)
  1. ENBREL [Suspect]
     Indication: PRODUCT USED FOR UNKNOWN INDICATION
     Dosage: 50 MG, QWK
     Route: 058
  2. METHOTREXATE [Concomitant]
     Dosage: 2.5 MG, UNK
  3. PROTONIX [Concomitant]
     Dosage: 40 MG, UNK
  4. FOLIC ACID [Concomitant]
     Dosage: UNK
  5. CARVEDILOL [Concomitant]
     Dosage: 25 MG, UNK
  6. LISINOPRIL [Concomitant]
     Dosage: 2.5 MG, UNK
  7. SIMVASTATIN [Concomitant]
     Dosage: 20 MG, UNK
  8. IRON [Concomitant]
     Dosage: UNK
  9. CALCIUM D                          /00944201/ [Concomitant]
     Dosage: UNK
  10. FISH OIL [Concomitant]
     Dosage: UNK
  11. BABY ASPIRIN [Concomitant]
     Dosage: 81 MG, UNK

REACTIONS (1)
  - Hepatic enzyme increased [Unknown]
